FAERS Safety Report 13681259 (Version 1)
Quarter: 2017Q2

REPORT INFORMATION
  Report Type: Spontaneous
  Country: US (occurrence: US)
  Receive Date: 20170623
  Receipt Date: 20170623
  Transmission Date: 20170830
  Serious: No
  Sender: FDA-Public Use
  Company Number: US-PFIZER INC-2017268644

PATIENT
  Age: 74 Year
  Sex: Male

DRUGS (7)
  1. APRISO [Concomitant]
     Active Substance: MESALAMINE
     Dosage: 375 MG, 3X/DAY
  2. ROSUVASTATIN. [Concomitant]
     Active Substance: ROSUVASTATIN
     Indication: BLOOD CHOLESTEROL
     Dosage: 10 MG, 1X/DAY (HALF A TABLET A DAY)
     Dates: start: 2013
  3. VITAMIN D [Concomitant]
     Active Substance: CHOLECALCIFEROL
     Indication: VITAMIN SUPPLEMENTATION
     Dosage: 3000 IU, DAILY
  4. TOVIAZ [Suspect]
     Active Substance: FESOTERODINE FUMARATE
     Dosage: 4 MG, 1X/DAY
     Dates: start: 2017
  5. TOVIAZ [Suspect]
     Active Substance: FESOTERODINE FUMARATE
     Indication: POLLAKIURIA
     Dosage: UNK
     Dates: start: 2016
  6. TOVIAZ [Suspect]
     Active Substance: FESOTERODINE FUMARATE
     Dosage: 8 MG, 1X/DAY
     Dates: start: 2017
  7. APRISO [Concomitant]
     Active Substance: MESALAMINE
     Indication: COLITIS
     Dosage: 4 DF, UNK

REACTIONS (5)
  - Hot flush [Unknown]
  - Drug ineffective [Unknown]
  - Lip dry [Not Recovered/Not Resolved]
  - Weight decreased [Not Recovered/Not Resolved]
  - Dry mouth [Not Recovered/Not Resolved]

NARRATIVE: CASE EVENT DATE: 2017
